FAERS Safety Report 18104182 (Version 1)
Quarter: 2020Q3

REPORT INFORMATION
  Report Type: Spontaneous
  Country: US (occurrence: US)
  Receive Date: 20200803
  Receipt Date: 20200803
  Transmission Date: 20201103
  Serious: No
  Sender: FDA-Public Use
  Company Number: None

PATIENT
  Age: 46 Year
  Sex: Female
  Weight: 97.07 kg

DRUGS (12)
  1. FOLIC ACID. [Concomitant]
     Active Substance: FOLIC ACID
  2. NAPROXEN. [Concomitant]
     Active Substance: NAPROXEN
  3. TRAMADOL HCL [Concomitant]
     Active Substance: TRAMADOL HYDROCHLORIDE
  4. VITAMIN D [Concomitant]
     Active Substance: VITAMIN D NOS
  5. VITAMIN D2 [Concomitant]
     Active Substance: ERGOCALCIFEROL
  6. DICLOFENAC SODIUM. [Concomitant]
     Active Substance: DICLOFENAC SODIUM
  7. INDOMETHACIN. [Concomitant]
     Active Substance: INDOMETHACIN
  8. METHOTREXATE. [Concomitant]
     Active Substance: METHOTREXATE
  9. PANTOPRAZOLE SODIUM. [Concomitant]
     Active Substance: PANTOPRAZOLE SODIUM
  10. REMICADE [Concomitant]
     Active Substance: INFLIXIMAB
  11. COSENTYX [Suspect]
     Active Substance: SECUKINUMAB
     Indication: PROSTATE CANCER
     Dosage: ?          OTHER FREQUENCY:ONCE MONTHLY;?
     Route: 058
     Dates: start: 20171113, end: 20200803
  12. NABUMETONE. [Concomitant]
     Active Substance: NABUMETONE

REACTIONS (1)
  - Disease progression [None]

NARRATIVE: CASE EVENT DATE: 20200803
